APPROVED DRUG PRODUCT: VENLAFAXINE HYDROCHLORIDE
Active Ingredient: VENLAFAXINE HYDROCHLORIDE
Strength: EQ 150MG BASE
Dosage Form/Route: TABLET, EXTENDED RELEASE;ORAL
Application: A214419 | Product #003 | TE Code: AB
Applicant: ASCENT PHARMACEUTICALS INC
Approved: Oct 21, 2020 | RLD: No | RS: No | Type: RX